FAERS Safety Report 9948996 (Version 5)
Quarter: 2015Q3

REPORT INFORMATION
  Report Type: Report from Study
  Country: JP (occurrence: JP)
  Receive Date: 20140304
  Receipt Date: 20150914
  Transmission Date: 20151125
  Serious: Yes (Hospitalization)
  Sender: FDA-Public Use
  Company Number: JP-ROCHE-1356920

PATIENT
  Age: 68 Year
  Sex: Male

DRUGS (8)
  1. TAKEPRON [Concomitant]
     Active Substance: LANSOPRAZOLE
     Route: 048
     Dates: start: 20121119
  2. BAYASPIRIN [Concomitant]
     Active Substance: ASPIRIN
     Route: 048
     Dates: start: 20120521
  3. METHOXY POLYETHYLENE GLYCOL-EPOETIN BETA [Suspect]
     Active Substance: METHOXY POLYETHYLENE GLYCOL-EPOETIN BETA
     Indication: NEPHROGENIC ANAEMIA
     Route: 058
     Dates: start: 20130726, end: 20140207
  4. EQUA [Concomitant]
     Active Substance: VILDAGLIPTIN
     Route: 048
     Dates: start: 20120423, end: 20150310
  5. PLETAAL [Concomitant]
     Active Substance: CILOSTAZOL
     Route: 048
     Dates: start: 20121119
  6. AMLODIN [Concomitant]
     Active Substance: AMLODIPINE BESYLATE
     Route: 048
     Dates: start: 20121022
  7. METHOXY POLYETHYLENE GLYCOL-EPOETIN BETA [Suspect]
     Active Substance: METHOXY POLYETHYLENE GLYCOL-EPOETIN BETA
     Indication: NEPHROGENIC ANAEMIA
     Route: 058
     Dates: start: 20140307, end: 20150218
  8. OLMESARTAN MEDOXOMIL. [Concomitant]
     Active Substance: OLMESARTAN MEDOXOMIL
     Route: 048

REACTIONS (5)
  - Hypertension [Recovered/Resolved]
  - Cardiac failure congestive [Recovering/Resolving]
  - Blood cholesterol decreased [Not Recovered/Not Resolved]
  - Chronic kidney disease [Not Recovered/Not Resolved]
  - Hyperuricaemia [Recovering/Resolving]

NARRATIVE: CASE EVENT DATE: 20131025
